FAERS Safety Report 19544081 (Version 1)
Quarter: 2021Q3

REPORT INFORMATION
  Report Type: Spontaneous
  Country: FR (occurrence: FR)
  Receive Date: 20210713
  Receipt Date: 20210713
  Transmission Date: 20211014
  Serious: Yes (Other)
  Sender: FDA-Public Use
  Company Number: FR-PFIZER INC-2021802733

PATIENT
  Age: 81 Year
  Sex: Male
  Weight: 69 kg

DRUGS (5)
  1. BISOCE [Suspect]
     Active Substance: BISOPROLOL
     Dosage: 1.25 MG
  2. COMIRNATY [Suspect]
     Active Substance: TOZINAMERAN
     Indication: COVID-19 IMMUNISATION
     Dosage: DOSE NUMBER UNKNOWN, 0.3ML SINGLE
     Route: 030
     Dates: start: 20210303, end: 20210303
  3. ATORVASTATINE PFIZER [Suspect]
     Active Substance: ATORVASTATIN
  4. KARDEGIC [Suspect]
     Active Substance: ASPIRIN DL-LYSINE
     Dosage: 75 MG
  5. ALFUZOSINE HCL [Suspect]
     Active Substance: ALFUZOSIN HYDROCHLORIDE

REACTIONS (1)
  - Bicytopenia [Recovering/Resolving]

NARRATIVE: CASE EVENT DATE: 20210421
